FAERS Safety Report 14092234 (Version 1)
Quarter: 2017Q4

REPORT INFORMATION
  Report Type: Report from Study
  Country: JP (occurrence: JP)
  Receive Date: 20171016
  Receipt Date: 20171016
  Transmission Date: 20180321
  Serious: Yes (Hospitalization)
  Sender: FDA-Public Use
  Company Number: JP-ACTELION-A-CH2017-158821

PATIENT
  Age: 70 Year
  Sex: Male

DRUGS (18)
  1. LASIX [Concomitant]
     Active Substance: FUROSEMIDE
  2. PREDONINE [Concomitant]
     Active Substance: PREDNISOLONE
  3. SELARA [Concomitant]
     Active Substance: EPLERENONE
  4. CARELOAD [Concomitant]
     Active Substance: BERAPROST SODIUM
  5. UPTRAVI [Concomitant]
     Active Substance: SELEXIPAG
  6. LANSOPRAZOLE. [Concomitant]
     Active Substance: LANSOPRAZOLE
  7. ALDACTONE [Concomitant]
     Active Substance: SPIRONOLACTONE
  8. OXYGEN. [Concomitant]
     Active Substance: OXYGEN
  9. QUETIAPINE. [Concomitant]
     Active Substance: QUETIAPINE
  10. NIFELANTERIN CR [Concomitant]
  11. OPSUMIT [Suspect]
     Active Substance: MACITENTAN
     Indication: PULMONARY ARTERIAL HYPERTENSION
     Dosage: 10 MG, QD
     Route: 048
     Dates: start: 20160628, end: 20170314
  12. WARFARIN [Suspect]
     Active Substance: WARFARIN
     Indication: PULMONARY ARTERIAL HYPERTENSION
     Dosage: 2.5 MG, QD
     Route: 048
     Dates: start: 20150504, end: 20170313
  13. BACTRAMIN [Concomitant]
     Active Substance: SULFAMETHOXAZOLE\TRIMETHOPRIM
  14. OLMETEC [Concomitant]
     Active Substance: OLMESARTAN MEDOXOMIL
  15. ADCIRCA [Concomitant]
     Active Substance: TADALAFIL
  16. AZILVA [Concomitant]
     Active Substance: AZILSARTAN KAMEDOXOMIL
  17. BENIDIPINE HYDROCHLORIDE [Concomitant]
     Active Substance: BENIDIPINE HYDROCHLORIDE
  18. LUNESTA [Concomitant]
     Active Substance: ESZOPICLONE

REACTIONS (1)
  - Drug eruption [Recovered/Resolved]

NARRATIVE: CASE EVENT DATE: 20170309
